FAERS Safety Report 4460155-X (Version None)
Quarter: 2004Q3

REPORT INFORMATION
  Report Type: 
  Country: None (occurrence: None)
  Receive Date: 20040928
  Receipt Date: 20040107
  Transmission Date: 20050211
  Serious: No
  Sender: FDA-Public Use
  Company Number: US-GLAXOSMITHKLINE-A0491912A

PATIENT
  Age: 69 Year
  Sex: Female

DRUGS (3)
  1. SEREVENT [Suspect]
     Indication: ASTHMA
     Dosage: 1PUFF TWICE PER DAY
     Route: 055
     Dates: start: 20031222, end: 20040201
  2. ADVAIR DISKUS 100/50 [Suspect]
  3. FLOVENT [Concomitant]

REACTIONS (5)
  - COUGH [None]
  - DRUG INEFFECTIVE [None]
  - HOARSENESS [None]
  - PHARYNGOLARYNGEAL PAIN [None]
  - PULMONARY FUNCTION TEST DECREASED [None]
